FAERS Safety Report 19129747 (Version 1)
Quarter: 2021Q2

REPORT INFORMATION
  Report Type: Spontaneous
  Country: US (occurrence: US)
  Receive Date: 20210413
  Receipt Date: 20210413
  Transmission Date: 20210717
  Serious: No
  Sender: FDA-Public Use
  Company Number: US-TOPROL-2020000341

PATIENT
  Sex: Female

DRUGS (4)
  1. METOPROLOL SUCCINATE. [Suspect]
     Active Substance: METOPROLOL SUCCINATE
     Dosage: 25 MG, UNK
  2. METOPROLOL SUCCINATE. [Suspect]
     Active Substance: METOPROLOL SUCCINATE
     Dosage: 50 MG, UNK
  3. LYNPARZA [Concomitant]
     Active Substance: OLAPARIB
     Dosage: 300 MG EVERY 12 HOURS, BEFORE EATING BREAKFAST AND AFTER EATING DINNER
  4. CRESTOR [Concomitant]
     Active Substance: ROSUVASTATIN CALCIUM

REACTIONS (2)
  - Dizziness [Recovered/Resolved]
  - Gait disturbance [Unknown]
